FAERS Safety Report 18609958 (Version 1)
Quarter: 2020Q4

REPORT INFORMATION
  Report Type: Spontaneous
  Country: GB (occurrence: GB)
  Receive Date: 20201214
  Receipt Date: 20201214
  Transmission Date: 20210114
  Serious: Yes (Disabling, Other)
  Sender: FDA-Public Use
  Company Number: GB-TEVA-2020-GB-1856968

PATIENT
  Age: 40 Year
  Sex: Male
  Weight: 74.38 kg

DRUGS (3)
  1. SERC [Concomitant]
  2. ROSUVASTATIN. [Suspect]
     Active Substance: ROSUVASTATIN
     Indication: BLOOD CHOLESTEROL INCREASED
     Dosage: UNIT DOSE : 10 MG
     Route: 048
     Dates: start: 20201019, end: 20201106
  3. IMODIUM [Concomitant]
     Active Substance: LOPERAMIDE HYDROCHLORIDE

REACTIONS (7)
  - Back pain [Unknown]
  - Neck pain [Recovering/Resolving]
  - Muscular weakness [Unknown]
  - Myalgia [Recovering/Resolving]
  - Headache [Unknown]
  - Muscle tightness [Unknown]
  - Hyperhidrosis [Unknown]

NARRATIVE: CASE EVENT DATE: 20201023
